FAERS Safety Report 7571544-9 (Version None)
Quarter: 2011Q2

REPORT INFORMATION
  Report Type: 
  Country: None (occurrence: None)
  Receive Date: 20110624
  Receipt Date: 20110615
  Transmission Date: 20111010
  Serious: Yes (Other)
  Sender: FDA-Public Use
  Company Number: US-JNJFOC-20110608635

PATIENT
  Sex: Female
  Weight: 56.7 kg

DRUGS (4)
  1. ZYRTEC [Concomitant]
     Indication: MULTIPLE ALLERGIES
     Route: 048
  2. ALL OTHER THERAPEUTIC PRODUCT [Concomitant]
     Indication: HERPES VIRUS INFECTION
     Route: 048
     Dates: start: 20101001
  3. MELATONIN [Concomitant]
     Indication: SLEEP DISORDER
     Route: 048
  4. ELMIRON [Suspect]
     Indication: CYSTITIS INTERSTITIAL
     Route: 048
     Dates: start: 20101001

REACTIONS (4)
  - ATTENTION DEFICIT/HYPERACTIVITY DISORDER [None]
  - GASTRIC DISORDER [None]
  - DEPRESSION [None]
  - DRUG PRESCRIBING ERROR [None]
